FAERS Safety Report 4918488-6 (Version None)
Quarter: 2006Q1

REPORT INFORMATION
  Report Type: 
  Country: None (occurrence: None)
  Receive Date: 20060217
  Receipt Date: 20060217
  Transmission Date: 20060701
  Serious: Yes (Other)
  Sender: FDA-Public Use
  Company Number: None

PATIENT
  Sex: Female
  Weight: 64.8644 kg

DRUGS (1)
  1. PACLITAXEL [Suspect]
     Indication: LUNG NEOPLASM MALIGNANT
     Dosage: 60MG/M2 = 100 MG IV DRIP
     Route: 041
     Dates: start: 20051208, end: 20060209

REACTIONS (3)
  - BACK PAIN [None]
  - FLUSHING [None]
  - NAUSEA [None]
